FAERS Safety Report 9377977 (Version 2)
Quarter: 2013Q3

REPORT INFORMATION
  Report Type: Spontaneous
  Country: IT (occurrence: IT)
  Receive Date: 20130701
  Receipt Date: 20130722
  Transmission Date: 20140515
  Serious: Yes (Death, Life-Threatening, Other)
  Sender: FDA-Public Use
  Company Number: IT-TEVA-414960ISR

PATIENT
  Age: 64 Year
  Sex: Female
  Weight: 65 kg

DRUGS (2)
  1. FLUOROURACILE TEVA [Suspect]
     Indication: ANAL CANCER
     Dosage: 1740 MILLIGRAM DAILY; ADMINISTERED THROUGH INFUSION PUMP
     Route: 042
     Dates: start: 20130527, end: 20130530
  2. MITOMYCIN C [Interacting]
     Indication: ANAL CANCER
     Dosage: 17 MILLIGRAM DAILY; POWDER FOR INJECTABLE SOLUTION
     Route: 042
     Dates: start: 20130527, end: 20130527

REACTIONS (14)
  - Stevens-Johnson syndrome [Fatal]
  - Respiratory distress [Fatal]
  - Erythema [Fatal]
  - Syncope [Fatal]
  - Vaginal inflammation [Fatal]
  - Stomatitis [Fatal]
  - Nausea [Fatal]
  - Vomiting [Fatal]
  - Diarrhoea [Fatal]
  - Thrombocytopenia [Fatal]
  - Leukopenia [Fatal]
  - Dermatitis [Fatal]
  - Conjunctivitis [Fatal]
  - Drug interaction [Fatal]
